FAERS Safety Report 7412693-5 (Version None)
Quarter: 2011Q2

REPORT INFORMATION
  Report Type: 
  Country: None (occurrence: None)
  Receive Date: 20110413
  Receipt Date: 20101029
  Transmission Date: 20111010
  Serious: Yes (Hospitalization, Other)
  Sender: FDA-Public Use
  Company Number: US-BAYER-201026757NA

PATIENT
  Age: 28 Year
  Sex: Female
  Weight: 62.585 kg

DRUGS (2)
  1. YAZ [Suspect]
     Indication: POLYCYSTIC OVARIES
     Dosage: UNK UNK, UNK
     Route: 048
     Dates: start: 20070401, end: 20070703
  2. NSAID'S [Concomitant]
     Dosage: UNK
     Dates: start: 20010101

REACTIONS (3)
  - PULMONARY EMBOLISM [None]
  - DEEP VEIN THROMBOSIS [None]
  - DYSPNOEA EXERTIONAL [None]
